FAERS Safety Report 12360214 (Version 1)
Quarter: 2016Q2

REPORT INFORMATION
  Report Type: Spontaneous
  Country: US (occurrence: US)
  Receive Date: 20160512
  Receipt Date: 20160512
  Transmission Date: 20160815
  Serious: Yes (Other)
  Sender: FDA-Public Use
  Company Number: US-MDT-ADR-2016-00857

PATIENT
  Age: 39 Year
  Sex: Male

DRUGS (1)
  1. LIORESAL [Suspect]
     Active Substance: BACLOFEN
     Route: 037

REACTIONS (3)
  - Muscle rigidity [Recovered/Resolved]
  - Irritability [Recovered/Resolved]
  - Medical device site discharge [Recovered/Resolved]

NARRATIVE: CASE EVENT DATE: 20160428
